FAERS Safety Report 6427076-4 (Version None)
Quarter: 2009Q4

REPORT INFORMATION
  Report Type: 
  Country: None (occurrence: None)
  Receive Date: 20091104
  Receipt Date: 20091027
  Transmission Date: 20100525
  Serious: Yes (Death, Hospitalization)
  Sender: FDA-Public Use
  Company Number: FR-NAPPMUNDI-GBR-2009-0005593

PATIENT
  Sex: Male
  Weight: 77 kg

DRUGS (2)
  1. OXYNORM CAPSULES 5 MG [Suspect]
     Indication: CANCER PAIN
     Dosage: 10 MG, DAILY
     Route: 048
     Dates: start: 20090830, end: 20090831
  2. OXYNORM CAPSULES 5 MG [Suspect]
     Dosage: 5 MG, DAILY
     Route: 048
     Dates: start: 20090309, end: 20090829

REACTIONS (9)
  - ABNORMAL BEHAVIOUR [None]
  - ACCIDENTAL DEATH [None]
  - AGITATION [None]
  - CONFUSIONAL STATE [None]
  - DRUG TOXICITY [None]
  - HYPERCALCAEMIA [None]
  - HYPERTHERMIA [None]
  - MIOSIS [None]
  - SOMNOLENCE [None]
